FAERS Safety Report 4930437-3 (Version None)
Quarter: 2006Q1

REPORT INFORMATION
  Report Type: 
  Country: None (occurrence: None)
  Receive Date: 20060227
  Receipt Date: 20060215
  Transmission Date: 20060701
  Serious: Yes (Disabling)
  Sender: FDA-Public Use
  Company Number: 222163

PATIENT
  Sex: Female

DRUGS (1)
  1. RAPTIVA [Suspect]
     Indication: PSORIASIS
     Dates: start: 20010301

REACTIONS (5)
  - ARTHRALGIA [None]
  - IMPAIRED WORK ABILITY [None]
  - ONYCHOMADESIS [None]
  - PUSTULAR PSORIASIS [None]
  - TREATMENT NONCOMPLIANCE [None]
